FAERS Safety Report 8492200-9 (Version None)
Quarter: 2012Q3

REPORT INFORMATION
  Report Type: 
  Country: None (occurrence: None)
  Receive Date: 20120706
  Receipt Date: 20120629
  Transmission Date: 20120928
  Serious: Yes (Hospitalization, Other)
  Sender: FDA-Public Use
  Company Number: US-BAYER-2011-105076

PATIENT
  Age: 45 Year
  Sex: Female
  Weight: 102.4 kg

DRUGS (11)
  1. BENADRYL [Concomitant]
     Dosage: 50 MG, UNK
     Route: 030
     Dates: start: 20090706
  2. ZYRTEC [Concomitant]
     Dosage: 10 MG, DAILY
  3. IBUPROFEN [Concomitant]
     Dosage: UNK
     Dates: start: 20020101, end: 20090101
  4. CETIRIZINE [Concomitant]
     Dosage: 5 MG, DAILYUNK
     Route: 048
  5. YASMIN [Suspect]
     Indication: CONTRACEPTION
     Dosage: UNK
     Route: 048
     Dates: start: 20090101, end: 20100101
  6. HYDROCHLOROTHIAZIDE [Concomitant]
  7. PROAIR HFA [Concomitant]
     Indication: ASTHMA
     Dosage: 90 ?G, PRN
  8. FLUTICASONE PROPIONATE [Concomitant]
     Dosage: 50 ?G, DAILY
     Route: 045
  9. PREDNISONE [Concomitant]
  10. DEPO-MEDROL [Concomitant]
     Dosage: 80 MG, UNK
     Route: 030
     Dates: start: 20090706
  11. AMOXICILLIN [Concomitant]
     Indication: ALLERGY TEST POSITIVE
     Dosage: 250 MG, UNK
     Route: 048
     Dates: start: 20090706

REACTIONS (7)
  - GALLBLADDER DISORDER [None]
  - EMOTIONAL DISTRESS [None]
  - ANXIETY [None]
  - CHOLECYSTITIS CHRONIC [None]
  - GENERAL PHYSICAL HEALTH DETERIORATION [None]
  - PAIN [None]
  - DYSPEPSIA [None]
